FAERS Safety Report 26086635 (Version 2)
Quarter: 2025Q4

REPORT INFORMATION
  Report Type: Spontaneous
  Country: GB (occurrence: GB)
  Receive Date: 20251125
  Receipt Date: 20251216
  Transmission Date: 20260117
  Serious: Yes (Other)
  Sender: AUROBINDO
  Company Number: GB-MHRA-MED-202511122109293790-NRQGM

PATIENT
  Age: 51 Year
  Sex: Female
  Weight: 59 kg

DRUGS (1)
  1. NITROFURANTOIN [Suspect]
     Active Substance: NITROFURANTOIN
     Indication: Urinary tract infection
     Dosage: UNK
     Route: 065

REACTIONS (10)
  - Urine analysis abnormal [Recovered/Resolved with Sequelae]
  - Medication error [Unknown]
  - Joint swelling [Unknown]
  - Confusional state [Unknown]
  - Chromaturia [Recovered/Resolved with Sequelae]
  - Vocal cord disorder [Unknown]
  - Gastrooesophageal reflux disease [Not Recovered/Not Resolved]
  - Drug ineffective [Unknown]
  - Back pain [Unknown]
  - Abdominal discomfort [Not Recovered/Not Resolved]
